FAERS Safety Report 5751512-X (Version None)
Quarter: 2008Q2

REPORT INFORMATION
  Report Type: 
  Country: None (occurrence: None)
  Receive Date: 20080528
  Receipt Date: 20080515
  Transmission Date: 20081010
  Serious: Yes (Other)
  Sender: FDA-Public Use
  Company Number: PHHY2008BR08357

PATIENT
  Age: 58 Year
  Sex: Male
  Weight: 70 kg

DRUGS (8)
  1. HYDERGINE [Suspect]
     Indication: MEMORY IMPAIRMENT
     Dosage: 4.5 MG, 1 TAB/DAY
     Route: 048
     Dates: start: 20040101
  2. VIAGRA [Concomitant]
  3. CIALIS [Concomitant]
  4. SELENIUM [Concomitant]
  5. COPPER [Concomitant]
  6. ZINC [Concomitant]
  7. ASCORBIC ACID [Concomitant]
  8. VITAMIN E [Concomitant]

REACTIONS (4)
  - ANXIETY [None]
  - ERECTILE DYSFUNCTION [None]
  - INFLUENZA [None]
  - STRESS [None]
